FAERS Safety Report 9927567 (Version 2)
Quarter: 2014Q1

REPORT INFORMATION
  Report Type: Spontaneous
  Country: BR (occurrence: BR)
  Receive Date: 20140227
  Receipt Date: 20140227
  Transmission Date: 20141002
  Serious: Yes (Hospitalization)
  Sender: FDA-Public Use
  Company Number: BR-BIOGENIDEC-2013BI084878

PATIENT
  Age: 61 Year
  Sex: Female

DRUGS (4)
  1. AVONEX [Suspect]
     Indication: MULTIPLE SCLEROSIS
     Route: 030
     Dates: start: 20061001, end: 20120818
  2. AVONEX [Suspect]
     Indication: MULTIPLE SCLEROSIS
     Route: 030
     Dates: start: 20120825
  3. DONAREN [Concomitant]
     Indication: ANXIETY
  4. PREDNISONE [Concomitant]
     Indication: SYSTEMIC LUPUS ERYTHEMATOSUS

REACTIONS (9)
  - Hypotension [Recovered/Resolved]
  - Multiple sclerosis relapse [Recovered/Resolved]
  - Skin burning sensation [Not Recovered/Not Resolved]
  - Systemic lupus erythematosus [Unknown]
  - Bone loss [Unknown]
  - Tooth loss [Unknown]
  - Musculoskeletal pain [Not Recovered/Not Resolved]
  - Myalgia [Recovered/Resolved]
  - Fatigue [Recovered/Resolved]
